FAERS Safety Report 9326338 (Version 1)
Quarter: 2013Q2

REPORT INFORMATION
  Report Type: Spontaneous
  Country: ES (occurrence: None)
  Receive Date: 20130530
  Receipt Date: 20130530
  Transmission Date: 20140414
  Serious: Yes (Other)
  Sender: FDA-Public Use
  Company Number: ES-1198396

PATIENT
  Age: 61 Year
  Sex: Male

DRUGS (1)
  1. MYDRIACYL [Suspect]
     Indication: FUNDOSCOPY
     Dosage: (1GTT QD OU OPHTHALMIC)
     Dates: start: 201204

REACTIONS (2)
  - Conjunctivitis [None]
  - Blepharitis [None]
